FAERS Safety Report 18367335 (Version 1)
Quarter: 2020Q4

REPORT INFORMATION
  Report Type: Spontaneous
  Country: HU (occurrence: HU)
  Receive Date: 20201009
  Receipt Date: 20201009
  Transmission Date: 20210114
  Serious: Yes (Hospitalization)
  Sender: FDA-Public Use
  Company Number: HU-JNJFOC-20201009944

PATIENT
  Age: 40 Year
  Sex: Female

DRUGS (2)
  1. ZAVESCA [Suspect]
     Active Substance: MIGLUSTAT
     Indication: NIEMANN-PICK DISEASE
     Dosage: 1 CAPSULE BID WAS REACHED IN ONE WEEK
     Route: 048
     Dates: start: 202002
  2. ZAVESCA [Suspect]
     Active Substance: MIGLUSTAT
     Dosage: 1 CAPSULE TID
     Route: 048

REACTIONS (3)
  - Dystonia [Unknown]
  - Restlessness [Unknown]
  - Diarrhoea [Unknown]
